FAERS Safety Report 5144392-7 (Version None)
Quarter: 2006Q4

REPORT INFORMATION
  Report Type: 
  Country: None (occurrence: None)
  Receive Date: 20061030
  Receipt Date: 20061019
  Transmission Date: 20070319
  Serious: No
  Sender: FDA-Public Use
  Company Number: 2006046760

PATIENT
  Sex: Female
  Weight: 2.645 kg

DRUGS (5)
  1. VIRACEPT [Suspect]
     Indication: HIV TEST POSITIVE
     Dosage: 2500 MG, ORAL
     Route: 048
     Dates: end: 20060115
  2. VIRACEPT [Suspect]
     Indication: HIV TEST POSITIVE
     Dosage: 2500 MG, ORAL
     Route: 048
     Dates: start: 20060407, end: 20060912
  3. TRUVADA [Suspect]
     Indication: HIV INFECTION
     Dosage: 1 TABLET, ORAL
     Route: 048
     Dates: end: 20060115
  4. COMBIVIR [Suspect]
     Indication: HIV TEST POSITIVE
     Dosage: 2 TABLETS, ORAL
     Route: 048
     Dates: start: 20060407, end: 20060912
  5. RETROVIR [Suspect]
     Indication: HIV TEST POSITIVE
     Dosage: 2 MG/KG/HR, INTRAVENOUS
     Route: 042
     Dates: start: 20060817, end: 20060817

REACTIONS (4)
  - ALPHA 1 FOETOPROTEIN ABNORMAL [None]
  - DRUG EXPOSURE DURING PREGNANCY [None]
  - PREGNANCY [None]
  - PREMATURE BABY [None]
